FAERS Safety Report 5064933-8 (Version None)
Quarter: 2006Q3

REPORT INFORMATION
  Report Type: 
  Country: None (occurrence: None)
  Receive Date: 20060726
  Receipt Date: 20060714
  Transmission Date: 20061208
  Serious: Yes (Other)
  Sender: FDA-Public Use
  Company Number: 2006089252

PATIENT
  Sex: Female
  Weight: 78 kg

DRUGS (8)
  1. NEURONTIN [Suspect]
     Indication: NEUROFIBROMATOSIS
     Dosage: ORAL
     Route: 048
     Dates: start: 20060501, end: 20060501
  2. LYRICA [Suspect]
     Indication: NEUROFIBROMATOSIS
     Dosage: 150 MG (75 MG, 2 IN 1 D), ORAL
     Route: 048
     Dates: start: 20060501
  3. DICLOFENAC SODIUM [Concomitant]
  4. ALBENDAZOLE (ALBENDAZOLE) [Concomitant]
  5. AERIUS (DESLORATADINE) [Concomitant]
  6. FLIXONASE (FLUTICASONE PROPIONATE) [Concomitant]
  7. FLIXOTIDE  GLAXO (FLUTICASONE PROPIONATE) [Concomitant]
  8. SALBUTAMOL (SALBUTAMOL) [Concomitant]

REACTIONS (1)
  - CONTUSION [None]
